FAERS Safety Report 16012687 (Version 2)
Quarter: 2019Q1

REPORT INFORMATION
  Report Type: Spontaneous
  Country: US (occurrence: US)
  Receive Date: 20190227
  Receipt Date: 20190306
  Transmission Date: 20190418
  Serious: Yes (Other)
  Sender: FDA-Public Use
  Company Number: US-B.I. PHARMACEUTICALS,INC./RIDGEFIELD-2019-BI-008261

PATIENT
  Age: 34 Year
  Sex: Female

DRUGS (2)
  1. VIRAMUNE [Suspect]
     Active Substance: NEVIRAPINE
     Indication: HIV INFECTION
     Dosage: FORM OF ADMIN:TAB/CAP
     Route: 048
  2. TRUVADA [Concomitant]
     Active Substance: EMTRICITABINE\TENOFOVIR DISOPROXIL FUMARATE
     Indication: PRODUCT USED FOR UNKNOWN INDICATION
     Dosage: FORM OF ADMIN : TAB/CAP
     Route: 048

REACTIONS (1)
  - Abortion spontaneous [Unknown]
